FAERS Safety Report 5779371-X (Version None)
Quarter: 2008Q2

REPORT INFORMATION
  Report Type: 
  Country: None (occurrence: None)
  Receive Date: 20080619
  Receipt Date: 20080616
  Transmission Date: 20081010
  Serious: Yes (Life-Threatening)
  Sender: FDA-Public Use
  Company Number: GB-BOEHRINGER INGELHEIM GMBH, GERMANY-2008-UK-01264UK

PATIENT
  Age: 73 Year
  Sex: Female

DRUGS (11)
  1. MOBIC [Suspect]
     Route: 048
  2. ALENDRONATE SODIUM [Concomitant]
  3. ASPIRIN [Concomitant]
  4. ATENOLOL [Concomitant]
  5. BENDROFLUMETHIAZIDE [Concomitant]
  6. BETAHISTINE [Concomitant]
     Dosage: 16MG, 3 / 1 DAYS
  7. CALCICHEW D3 [Concomitant]
     Dosage: 1DF  2 / 1 DAYS
  8. DILTIAZEM [Concomitant]
  9. DOSULEPIN [Concomitant]
  10. EZETEMIBE [Concomitant]
  11. SIMVASTATIN [Concomitant]

REACTIONS (1)
  - ISCHAEMIC STROKE [None]
